FAERS Safety Report 4446092-5 (Version None)
Quarter: 2004Q3

REPORT INFORMATION
  Report Type: 
  Country: None (occurrence: None)
  Receive Date: 20040907
  Receipt Date: 20040827
  Transmission Date: 20050211
  Serious: Yes (Hospitalization)
  Sender: FDA-Public Use
  Company Number: 2004-03829

PATIENT
  Age: 34 Year
  Sex: Male

DRUGS (2)
  1. SULFASALAZINE [Suspect]
     Indication: PERIRECTAL ABSCESS
     Dosage: 1 G, QID, ORAL
     Route: 048
     Dates: start: 19981001, end: 19981101
  2. SULFASALAZINE [Suspect]
     Indication: PERIRECTAL ABSCESS
     Dosage: 1 G, QID, ORAL
     Route: 048
     Dates: start: 19981211, end: 19981214

REACTIONS (3)
  - DRUG HYPERSENSITIVITY [None]
  - HEPATIC FAILURE [None]
  - LYMPHOCYTOSIS [None]
